FAERS Safety Report 5502057-3 (Version None)
Quarter: 2007Q4

REPORT INFORMATION
  Report Type: 
  Country: None (occurrence: None)
  Receive Date: 20071030
  Receipt Date: 20070718
  Transmission Date: 20080405
  Serious: No
  Sender: FDA-Public Use
  Company Number: A0664850A

PATIENT
  Age: 34 Year
  Sex: Female

DRUGS (7)
  1. IMITREX [Suspect]
     Indication: MIGRAINE
     Route: 045
  2. ZOMIG [Concomitant]
  3. ALLEGRA [Concomitant]
  4. RHINOCORT [Concomitant]
  5. EFFEXOR XR [Concomitant]
  6. TOPAMAX [Concomitant]
  7. IMITREX [Concomitant]

REACTIONS (1)
  - THERMAL BURN [None]
